FAERS Safety Report 10253486 (Version 1)
Quarter: 2014Q2

REPORT INFORMATION
  Report Type: Other
  Country: JP (occurrence: JP)
  Receive Date: 20140623
  Receipt Date: 20140623
  Transmission Date: 20141212
  Serious: Yes (Hospitalization, Other)
  Sender: FDA-Public Use
  Company Number: JP-BRISTOL-MYERS SQUIBB COMPANY-21053046

PATIENT
  Age: 56 Year
  Sex: Male

DRUGS (4)
  1. METGLUCO [Suspect]
     Indication: TYPE 2 DIABETES MELLITUS
     Route: 048
  2. HALOPERIDOL [Suspect]
     Indication: DEMENTIA
     Route: 048
  3. LEVOMEPROMAZINE MALEATE [Concomitant]
     Indication: DEMENTIA
     Route: 048
  4. CHLORPROMAZINE HCL [Concomitant]
     Indication: DEMENTIA
     Route: 048

REACTIONS (1)
  - Neuroleptic malignant syndrome [Recovering/Resolving]
